FAERS Safety Report 9269662 (Version 1)
Quarter: 2013Q2

REPORT INFORMATION
  Report Type: Spontaneous
  Country: US (occurrence: US)
  Receive Date: 20130503
  Receipt Date: 20130503
  Transmission Date: 20140414
  Serious: Yes (Hospitalization)
  Sender: FDA-Public Use
  Company Number: US-BAYER-2013-053897

PATIENT
  Age: 28 Year
  Sex: Female
  Weight: 54 kg

DRUGS (3)
  1. OCELLA [Suspect]
     Dosage: UNK
     Dates: start: 201104, end: 20120107
  2. SINGULAIR [Concomitant]
  3. ADVIL [Concomitant]
     Indication: HEADACHE
     Dosage: UNK UNK, PRN

REACTIONS (1)
  - Cerebrovascular accident [None]
